FAERS Safety Report 26180070 (Version 1)
Quarter: 2025Q4

REPORT INFORMATION
  Report Type: Spontaneous
  Country: AU (occurrence: AU)
  Receive Date: 20251219
  Receipt Date: 20251219
  Transmission Date: 20260117
  Serious: Yes (Death, Other)
  Sender: NOVO NORDISK
  Company Number: AU-NOVOPROD-1585529

PATIENT
  Sex: Male

DRUGS (1)
  1. ALHEMO [Suspect]
     Active Substance: CONCIZUMAB-MTCI
     Indication: Factor IX deficiency
     Dosage: UNK
     Dates: start: 202406, end: 202511

REACTIONS (1)
  - Death [Fatal]
